FAERS Safety Report 21914912 (Version 2)
Quarter: 2023Q1

REPORT INFORMATION
  Report Type: Spontaneous
  Country: GB (occurrence: GB)
  Receive Date: 20230126
  Receipt Date: 20230329
  Transmission Date: 20230417
  Serious: Yes (Other)
  Sender: FDA-Public Use
  Company Number: GB-PFIZER INC-202300034030

PATIENT
  Age: 89 Year
  Sex: Female

DRUGS (2)
  1. FRAGMIN [Suspect]
     Active Substance: DALTEPARIN SODIUM
  2. TEGRETOL [Suspect]
     Active Substance: CARBAMAZEPINE

REACTIONS (5)
  - Delirium [Unknown]
  - Fatigue [Unknown]
  - Disorientation [Unknown]
  - Pruritus [Unknown]
  - Amnesia [Unknown]
